FAERS Safety Report 8785329 (Version 1)
Quarter: 2012Q4

REPORT INFORMATION
  Report Type: 
  Country: US (occurrence: US)
  Receive Date: 20120914
  Receipt Date: 20120914
  Transmission Date: 20130627
  Serious: Yes (Death)
  Sender: FDA-Public Use
  Company Number: US-TEVA-358912USA

PATIENT
  Sex: Male

DRUGS (1)
  1. FENTORA [Suspect]
     Dosage: Q 4-6 hr
     Route: 002
     Dates: start: 20120731, end: 20120802

REACTIONS (2)
  - Prostate cancer [Fatal]
  - Metastases to bone [Fatal]
